FAERS Safety Report 10194308 (Version 2)
Quarter: 2014Q2

REPORT INFORMATION
  Report Type: Spontaneous
  Country: CA (occurrence: CA)
  Receive Date: 20140526
  Receipt Date: 20140526
  Transmission Date: 20141212
  Serious: Yes (Hospitalization, Other)
  Sender: FDA-Public Use
  Company Number: CA-AMGEN-CANSP2014032788

PATIENT
  Age: 44 Year
  Sex: Female

DRUGS (16)
  1. ENBREL [Suspect]
     Indication: RHEUMATOID ARTHRITIS
     Dosage: 50 MG, UNK
     Route: 065
     Dates: start: 20130919
  2. ARAVA [Concomitant]
     Dosage: UNK
  3. KETOPROFEN [Concomitant]
     Dosage: UNK
  4. VITAMIN D                          /00107901/ [Concomitant]
     Dosage: 10000 IU, QWK
  5. CALCIUM [Concomitant]
     Dosage: 500 MG, QD
  6. GABAPENTIN [Concomitant]
     Dosage: 2000 MG, QD
  7. FENTANYL [Concomitant]
     Dosage: 75 MG, UNK,  EVERY 3 DAYS
  8. DILAUDID [Concomitant]
     Dosage: 2 MG, UNK
  9. TIAZAC                             /00489702/ [Concomitant]
     Dosage: 360 MG, QD
  10. BISOPROLOL                         /00802602/ [Concomitant]
     Dosage: 5 MG, UNK ,  0.5 TAB AT BEDTIME
  11. PROPAFENONE [Concomitant]
     Dosage: 450 MG, UNK, AT BEDTIME
  12. TRIAZIDE                           /00065401/ [Concomitant]
     Dosage: UNK UNK, QD
  13. DOCUSATE SODIUM [Concomitant]
     Dosage: 240 MG, QD
  14. ALESSE [Concomitant]
     Dosage: UNK UNK, QD
  15. NEXIUM                             /01479302/ [Concomitant]
     Dosage: 40 MG, QD
  16. SYNTHROID [Concomitant]
     Dosage: 0.50 MG, QD

REACTIONS (3)
  - Cholelithiasis [Not Recovered/Not Resolved]
  - Cholecystitis [Not Recovered/Not Resolved]
  - Faeces discoloured [Not Recovered/Not Resolved]
